FAERS Safety Report 13094101 (Version 2)
Quarter: 2017Q1

REPORT INFORMATION
  Report Type: Spontaneous
  Country: US (occurrence: US)
  Receive Date: 20170106
  Receipt Date: 20170120
  Transmission Date: 20170428
  Serious: Yes (Hospitalization, Other)
  Sender: FDA-Public Use
  Company Number: US-PRINSTON PHARMACEUTICAL INC.-2016PRN00353

PATIENT
  Age: 33 Year
  Sex: Female
  Weight: 61.22 kg

DRUGS (11)
  1. FLONASE [Concomitant]
     Active Substance: FLUTICASONE PROPIONATE
  2. ALLEGRA [Concomitant]
     Active Substance: FEXOFENADINE HYDROCHLORIDE
  3. ALBUTEROL. [Concomitant]
     Active Substance: ALBUTEROL
  4. LEVETIRACETAM. [Suspect]
     Active Substance: LEVETIRACETAM
     Indication: PARTIAL SEIZURES
     Dosage: 2000 MG, 1X/DAY
     Route: 048
     Dates: start: 2013, end: 2013
  5. OMEPRAZOLE. [Concomitant]
     Active Substance: OMEPRAZOLE
  6. RANITIDINE. [Concomitant]
     Active Substance: RANITIDINE
  7. FOLIC ACID. [Concomitant]
     Active Substance: FOLIC ACID
  8. ORTHO TRI CYCLEN LO [Concomitant]
     Active Substance: ETHINYL ESTRADIOL\NORGESTIMATE
  9. EPIPEN [Concomitant]
     Active Substance: EPINEPHRINE
  10. LEVETIRACETAM. [Suspect]
     Active Substance: LEVETIRACETAM
     Indication: GENERALISED TONIC-CLONIC SEIZURE
     Dosage: 1000 MG, 1X/DAY
     Route: 048
     Dates: start: 2013, end: 2013
  11. PRENATAL VITAMIN [Concomitant]
     Active Substance: VITAMINS

REACTIONS (10)
  - Caesarean section [Unknown]
  - Chills [Recovered/Resolved]
  - Gastrooesophageal reflux disease [Recovered/Resolved]
  - Flushing [Recovered/Resolved]
  - Histamine abnormal [Recovered/Resolved]
  - Mast cell activation syndrome [Not Recovered/Not Resolved]
  - Product substitution issue [Recovered/Resolved]
  - Exposure during pregnancy [Unknown]
  - Ventricular tachycardia [Not Recovered/Not Resolved]
  - Hyperhidrosis [Recovered/Resolved]

NARRATIVE: CASE EVENT DATE: 2013
